FAERS Safety Report 11925496 (Version 2)
Quarter: 2016Q1

REPORT INFORMATION
  Report Type: Other
  Country: US (occurrence: US)
  Receive Date: 20160118
  Receipt Date: 20160321
  Transmission Date: 20160526
  Serious: Yes (Other)
  Sender: FDA-Public Use
  Company Number: US-COL_21501_2015

PATIENT
  Sex: Female

DRUGS (2)
  1. COLGATE TOTAL LASTING WHITE POLAR FRESHMINT [Suspect]
     Active Substance: SODIUM FLUORIDE
     Indication: DENTAL DISORDER PROPHYLAXIS
     Dosage: NI/ ONCE DAILY/
     Route: 048
     Dates: start: 201511, end: 2015
  2. COLGATE TOTAL LASTING WHITE POLAR FRESHMINT [Suspect]
     Active Substance: SODIUM FLUORIDE
     Dosage: NI/ONCE DAILY/
     Route: 048
     Dates: start: 2015, end: 20151203

REACTIONS (1)
  - Hypersensitivity [Recovered/Resolved]

NARRATIVE: CASE EVENT DATE: 2015
